FAERS Safety Report 4645818-5 (Version None)
Quarter: 2005Q2

REPORT INFORMATION
  Report Type: 
  Country: None (occurrence: None)
  Receive Date: 20050425
  Receipt Date: 20050418
  Transmission Date: 20051028
  Serious: Yes (Other)
  Sender: FDA-Public Use
  Company Number: 2005059625

PATIENT
  Sex: Male
  Weight: 79.3795 kg

DRUGS (9)
  1. LIPITOR [Suspect]
     Indication: BLOOD CHOLESTEROL
     Dosage: 40 MG (40 MG, 1 IN 1 D), ORAL
     Route: 048
     Dates: end: 20050401
  2. NORVASC [Suspect]
     Indication: CARDIAC DISORDER
     Dosage: 5 MG (5 MG, 1 IN 1 D), ORAL
     Route: 048
     Dates: end: 20050401
  3. CADUET [Suspect]
     Indication: BLOOD CHOLESTEROL
     Dosage: 80/10, ORAL
     Route: 048
     Dates: start: 20050401
  4. CADUET [Suspect]
     Indication: BLOOD PRESSURE
     Dosage: 80/10, ORAL
     Route: 048
     Dates: start: 20050401
  5. FUROSEMIDE [Concomitant]
  6. POTASSIUM ACETATE [Concomitant]
  7. PAROXETINE HCL [Concomitant]
  8. RAMIPRIL [Concomitant]
  9. METOPROLOL SUCCINATE [Concomitant]

REACTIONS (7)
  - BLOOD GLUCOSE DECREASED [None]
  - BLOOD PRESSURE DECREASED [None]
  - CARDIAC DISORDER [None]
  - EYE DISORDER [None]
  - EYE HAEMORRHAGE [None]
  - PHOTOPHOBIA [None]
  - VISION BLURRED [None]
